FAERS Safety Report 18954680 (Version 1)
Quarter: 2021Q1

REPORT INFORMATION
  Report Type: Spontaneous
  Country: IL (occurrence: IL)
  Receive Date: 20210301
  Receipt Date: 20210301
  Transmission Date: 20210420
  Serious: Yes (Hospitalization)
  Sender: FDA-Public Use
  Company Number: IL-TEVA-2021-IL-1884695

PATIENT
  Sex: Female

DRUGS (1)
  1. DEXTROAMPHET SACCHARAT, AMPHET ASPARTATE, DEXTROAMPHET SULFATE AND AMPHET SULFAT [Suspect]
     Active Substance: AMPHETAMINE ASPARTATE\AMPHETAMINE SULFATE\DEXTROAMPHETAMINE SACCHARATE\DEXTROAMPHETAMINE SULFATE
     Indication: ATTENTION DEFICIT HYPERACTIVITY DISORDER
     Route: 065

REACTIONS (18)
  - Hypoaesthesia [Unknown]
  - Visual impairment [Unknown]
  - Angina pectoris [Unknown]
  - Discomfort [Unknown]
  - Movement disorder [Unknown]
  - Myalgia [Unknown]
  - Prescription drug used without a prescription [Unknown]
  - Bradykinesia [Unknown]
  - Exploding head syndrome [Unknown]
  - Overdose [Unknown]
  - Palpitations [Unknown]
  - Tremor [Unknown]
  - Pain in extremity [Unknown]
  - Anxiety [Unknown]
  - Feeling abnormal [Unknown]
  - Crying [Unknown]
  - Trismus [Unknown]
  - Drug abuse [Unknown]
